FAERS Safety Report 5528976-X (Version None)
Quarter: 2007Q4

REPORT INFORMATION
  Report Type: 
  Country: None (occurrence: None)
  Receive Date: 20071109
  Receipt Date: 20070608
  Transmission Date: 20080405
  Serious: Yes (Other)
  Sender: FDA-Public Use
  Company Number: PHEH2005US07870

PATIENT
  Age: 60 Year
  Sex: Female
  Weight: 60.3 kg

DRUGS (13)
  1. ESTRADERM [Suspect]
     Indication: MENOPAUSE
     Dosage: 0.05 MG, TRANSDERMAL
     Route: 062
     Dates: start: 19960722, end: 19970806
  2. PREMARIN [Suspect]
     Dates: start: 19820101, end: 19960101
  3. PROVERA [Suspect]
     Indication: MENOPAUSE
     Dosage: 2.5 MG, ORAL
     Dates: start: 19820101, end: 19960101
  4. PROVERA [Suspect]
     Indication: MENOPAUSE
     Dosage: 2.5 MG, ORAL
     Dates: start: 19960722, end: 19960801
  5. MEDROXYPROGESTERONE ACETATE [Suspect]
     Indication: MENOPAUSE
     Dosage: 2.5 MG ; 2.5 MG
     Dates: start: 19820101, end: 19960101
  6. MEDROXYPROGESTERONE ACETATE [Suspect]
     Indication: MENOPAUSE
     Dosage: 2.5 MG ; 2.5 MG
     Dates: start: 19960722, end: 19970705
  7. MEDROXYPROGESTERONE ACETATE [Suspect]
     Indication: MENOPAUSE
     Dosage: 2.5 MG ; 2.5 MG
     Dates: start: 19970806
  8. PREMPRO [Suspect]
     Indication: MENOPAUSE
     Dosage: 0.625 MG/5 MG, ORAL
     Route: 048
     Dates: start: 19960101, end: 20001101
  9. PREMPRO [Suspect]
     Indication: MENOPAUSE
     Dosage: 0.625 MG/5 MG, ORAL
     Route: 048
     Dates: start: 19970925, end: 20001103
  10. LEVOTHYROXINE SODIUM [Concomitant]
  11. LASIX [Concomitant]
  12. POTASSIUM (POTASSIUM) [Concomitant]
  13. FOSAMAX [Concomitant]

REACTIONS (26)
  - ABDOMINAL PAIN [None]
  - ADENOMYOSIS [None]
  - ADHESIOLYSIS [None]
  - ANXIETY [None]
  - BREAST CANCER [None]
  - BREAST MASS [None]
  - BREAST RECONSTRUCTION [None]
  - CHOLANGIOGRAM ABNORMAL [None]
  - CHOLECYSTECTOMY [None]
  - CHOLECYSTITIS CHRONIC [None]
  - DIVERTICULUM [None]
  - DYSTONIA [None]
  - ECHINOCOCCIASIS [None]
  - GALLBLADDER DISORDER [None]
  - HYSTERECTOMY [None]
  - INFLAMMATION [None]
  - LYMPHADENECTOMY [None]
  - NAUSEA [None]
  - PSYCHIATRIC SYMPTOM [None]
  - PSYCHOGENIC PAIN DISORDER [None]
  - RADICAL MASTECTOMY [None]
  - RADIOTHERAPY [None]
  - SALPINGO-OOPHORECTOMY [None]
  - UTERINE HAEMORRHAGE [None]
  - UTERINE STENOSIS [None]
  - VOMITING [None]
